FAERS Safety Report 9657944 (Version 1)
Quarter: 2013Q4

REPORT INFORMATION
  Report Type: Spontaneous
  Country: GB (occurrence: None)
  Receive Date: 20131029
  Receipt Date: 20131029
  Transmission Date: 20140711
  Serious: Yes (Life-Threatening, Other)
  Sender: FDA-Public Use
  Company Number: 1972841

PATIENT
  Age: 75 Year
  Sex: Female

DRUGS (1)
  1. (METHOTREXATE) [Suspect]
     Indication: RHEUMATOID ARTHRITIS
     Route: 058
     Dates: start: 20131003

REACTIONS (3)
  - Cardiac arrest [None]
  - Thermal burn [None]
  - Skin graft [None]
